FAERS Safety Report 25463322 (Version 1)
Quarter: 2025Q2

REPORT INFORMATION
  Report Type: Spontaneous
  Country: US (occurrence: US)
  Receive Date: 20250620
  Receipt Date: 20250620
  Transmission Date: 20250717
  Serious: No
  Sender: Kenvue
  Company Number: US-KENVUE-20250600761

PATIENT
  Age: 17 Year
  Sex: Female

DRUGS (10)
  1. IMODIUM [Suspect]
     Active Substance: LOPERAMIDE HYDROCHLORIDE
     Indication: Diarrhoea
     Route: 065
  2. GOMEKLI [Concomitant]
     Active Substance: MIRDAMETINIB
     Indication: Neurofibromatosis
     Dosage: 2 MILLIGRAM, TWICE A DAY
     Route: 048
     Dates: start: 20250320
  3. GOMEKLI [Concomitant]
     Active Substance: MIRDAMETINIB
     Indication: Neoplasm
  4. CLINDAMYCIN [Concomitant]
     Active Substance: CLINDAMYCIN
     Indication: Acne
     Route: 065
  5. DOXYCYCLINE [Concomitant]
     Active Substance: DOXYCYCLINE
     Indication: Acne
     Route: 065
  6. UNSPECIFIED INGREDIENT [Concomitant]
     Active Substance: UNSPECIFIED INGREDIENT
     Indication: Acne
     Route: 065
  7. scalp oil [Concomitant]
     Indication: Pruritus
     Route: 065
  8. scalp oil [Concomitant]
     Indication: Skin exfoliation
  9. UNSPECIFIED INGREDIENT [Concomitant]
     Active Substance: UNSPECIFIED INGREDIENT
     Indication: Pruritus
     Route: 065
  10. UNSPECIFIED INGREDIENT [Concomitant]
     Active Substance: UNSPECIFIED INGREDIENT
     Indication: Skin exfoliation

REACTIONS (1)
  - Constipation [Unknown]

NARRATIVE: CASE EVENT DATE: 20250328
